FAERS Safety Report 22313200 (Version 1)
Quarter: 2023Q2

REPORT INFORMATION
  Report Type: Spontaneous
  Country: US (occurrence: US)
  Receive Date: 20230512
  Receipt Date: 20230512
  Transmission Date: 20230721
  Serious: No
  Sender: FDA-Public Use
  Company Number: US-BEH-2023158405

PATIENT
  Sex: Female

DRUGS (14)
  1. HIZENTRA [Suspect]
     Active Substance: HUMAN IMMUNOGLOBULIN G
     Indication: Hypogammaglobulinaemia
     Dosage: 8 GRAM, QW
     Route: 058
     Dates: start: 20200115
  2. COLLAGEN + VITAMIN C [Concomitant]
  3. CRESTOR [Concomitant]
     Active Substance: ROSUVASTATIN CALCIUM
  4. EUFLEXXA [Concomitant]
     Active Substance: HYALURONATE SODIUM
  5. MAGNESIUM STEARATE [Concomitant]
     Active Substance: MAGNESIUM STEARATE
  6. STELARA [Concomitant]
     Active Substance: USTEKINUMAB
  7. SYNVISC [Concomitant]
     Active Substance: HYLAN G-F 20
  8. TRAZODONE [Concomitant]
     Active Substance: TRAZODONE HYDROCHLORIDE
  9. VITAMIN B12 [Concomitant]
     Active Substance: CYANOCOBALAMIN
  10. VITAMIN C [Concomitant]
     Active Substance: ASCORBIC ACID
  11. VITAMIN D NOS [Concomitant]
     Active Substance: VITAMIN D NOS
  12. VITAMIN D2 [Concomitant]
     Active Substance: ERGOCALCIFEROL
  13. ZOLOFT [Concomitant]
     Active Substance: SERTRALINE HYDROCHLORIDE
  14. ZYRTEC [Concomitant]
     Active Substance: CETIRIZINE HYDROCHLORIDE

REACTIONS (1)
  - Ill-defined disorder [Unknown]
